FAERS Safety Report 9232823 (Version 1)
Quarter: 2013Q2

REPORT INFORMATION
  Report Type: Spontaneous
  Country: US (occurrence: None)
  Receive Date: 20130415
  Receipt Date: 20130415
  Transmission Date: 20140414
  Serious: Yes (Disabling)
  Sender: FDA-Public Use
  Company Number: None

PATIENT
  Age: 61 Year
  Sex: Male
  Weight: 81.65 kg

DRUGS (1)
  1. LEVOFLOXACIN [Suspect]
     Indication: CELLULITIS
     Dosage: ONE CAPSULE Q24HRS, PO
     Route: 048
     Dates: start: 20130130, end: 20130210

REACTIONS (2)
  - Tendonitis [None]
  - Tendon rupture [None]
